FAERS Safety Report 5429381-7 (Version None)
Quarter: 2007Q3

REPORT INFORMATION
  Report Type: 
  Country: None (occurrence: None)
  Receive Date: 20070829
  Receipt Date: 20070820
  Transmission Date: 20080115
  Serious: Yes (Other)
  Sender: FDA-Public Use
  Company Number: GB-BAUSCH-2007BL002979

PATIENT
  Age: 5 Month
  Sex: Male

DRUGS (2)
  1. GENTAMICIN SULFATE [Suspect]
     Route: 042
  2. CEFTAZIDIME [Concomitant]
     Indication: CYSTIC FIBROSIS

REACTIONS (1)
  - RENAL FAILURE ACUTE [None]
